FAERS Safety Report 23772877 (Version 4)
Quarter: 2024Q3

REPORT INFORMATION
  Report Type: Spontaneous
  Country: US (occurrence: US)
  Receive Date: 20240423
  Receipt Date: 20240919
  Transmission Date: 20241017
  Serious: Yes (Death, Other)
  Sender: BOEHRINGER INGELHEIM
  Company Number: US-BoehringerIngelheim-2024-BI-023517

PATIENT
  Age: 76 Year
  Sex: Female

DRUGS (1)
  1. SPIRIVA [Suspect]
     Active Substance: TIOTROPIUM BROMIDE MONOHYDRATE
     Indication: Chronic obstructive pulmonary disease
     Route: 048
     Dates: start: 2024

REACTIONS (5)
  - Death [Fatal]
  - Anal squamous cell carcinoma [Not Recovered/Not Resolved]
  - Breast cancer metastatic [Not Recovered/Not Resolved]
  - Fall [Unknown]
  - Skin abrasion [Recovering/Resolving]

NARRATIVE: CASE EVENT DATE: 20240101
